FAERS Safety Report 4635720-7 (Version None)
Quarter: 2005Q2

REPORT INFORMATION
  Report Type: 
  Country: None (occurrence: None)
  Receive Date: 20050413
  Receipt Date: 20050331
  Transmission Date: 20051028
  Serious: Yes (Hospitalization, Other)
  Sender: FDA-Public Use
  Company Number: HQWYE626101APR05

PATIENT
  Age: 38 Year
  Sex: Female

DRUGS (7)
  1. ZOSYN [Suspect]
     Indication: SKIN INFECTION
     Dosage: 3.375 G 1X PER 6 HR, INTRAVENOUS
     Route: 042
     Dates: start: 20011211, end: 20011216
  2. AMOXICILLIN AND CLAVULANATE POTASSIUM [Suspect]
     Indication: SKIN INFECTION
     Dosage: 800 MG 1X PER 12 HR, ORAL
     Route: 048
     Dates: start: 20011216, end: 20011224
  3. ZERIT [Concomitant]
  4. CRIXIVAN [Concomitant]
  5. RITONAVIR (RITONAVIR) [Concomitant]
  6. VANCOMYCIN [Concomitant]
  7. FAMVIR [Concomitant]

REACTIONS (2)
  - DEHYDRATION [None]
  - DIARRHOEA [None]
